FAERS Safety Report 6430686-1 (Version None)
Quarter: 2009Q4

REPORT INFORMATION
  Report Type: 
  Country: None (occurrence: None)
  Receive Date: 20091105
  Receipt Date: 20091105
  Transmission Date: 20100525
  Serious: Yes (Hospitalization)
  Sender: FDA-Public Use
  Company Number: None

PATIENT
  Age: 2 Year
  Sex: Female
  Weight: 11.3 kg

DRUGS (1)
  1. BOTOX [Suspect]
     Indication: SALIVARY HYPERSECRETION
     Dosage: 200 UNITS ONCE

REACTIONS (8)
  - BOTULISM [None]
  - DRUG TOXICITY [None]
  - DYSPHONIA [None]
  - FACIAL PARESIS [None]
  - GRIP STRENGTH DECREASED [None]
  - HYPOTONIA [None]
  - IATROGENIC INJURY [None]
  - MOVEMENT DISORDER [None]
